FAERS Safety Report 7821894-3 (Version None)
Quarter: 2011Q4

REPORT INFORMATION
  Report Type: 
  Country: None (occurrence: None)
  Receive Date: 20111018
  Receipt Date: 20110204
  Transmission Date: 20120403
  Serious: No
  Sender: FDA-Public Use
  Company Number: US-ASTRAZENECA-2011SE06408

PATIENT
  Age: 43 Year
  Sex: Female
  Weight: 113.4 kg

DRUGS (4)
  1. LISINOPRIL [Concomitant]
     Indication: HYPERTENSION
  2. SYMBICORT [Suspect]
     Indication: ASTHMA
     Dosage: 160 MCG BID
     Route: 055
     Dates: start: 20100301
  3. NATURAL WATER PILL [Concomitant]
     Indication: SINUS DISORDER
  4. DECONGESTANTS [Concomitant]
     Indication: SINUS DISORDER

REACTIONS (3)
  - BRONCHITIS [None]
  - ORAL CANDIDIASIS [None]
  - ALOPECIA [None]
